FAERS Safety Report 6528894-4 (Version None)
Quarter: 2010Q1

REPORT INFORMATION
  Report Type: 
  Country: None (occurrence: None)
  Receive Date: 20100106
  Receipt Date: 20091229
  Transmission Date: 20100710
  Serious: Yes (Other)
  Sender: FDA-Public Use
  Company Number: PHEH2009US18439

PATIENT
  Sex: Female

DRUGS (6)
  1. GLEEVEC [Suspect]
     Dosage: 400 MG, UNK
     Dates: start: 20090201, end: 20090901
  2. TRICOR [Concomitant]
  3. ALLEGRA [Concomitant]
  4. NEXIUM [Concomitant]
  5. ZOFRAN [Concomitant]
  6. COENZYME A [Concomitant]
     Indication: MUSCLE SPASMS

REACTIONS (8)
  - ARTHRALGIA [None]
  - BONE PAIN [None]
  - DIZZINESS [None]
  - EYE SWELLING [None]
  - FALL [None]
  - OEDEMA [None]
  - OEDEMA PERIPHERAL [None]
  - PERIORBITAL OEDEMA [None]
